FAERS Safety Report 17798111 (Version 3)
Quarter: 2020Q4

REPORT INFORMATION
  Report Type: Spontaneous
  Country: US (occurrence: US)
  Receive Date: 20200518
  Receipt Date: 20201109
  Transmission Date: 20210113
  Serious: No
  Sender: FDA-Public Use
  Company Number: US-VERTEX PHARMACEUTICALS-2020-010833

PATIENT
  Age: 24 Year
  Sex: Male

DRUGS (1)
  1. TRIKAFTA [Suspect]
     Active Substance: ELEXACAFTOR\IVACAFTOR\TEZACAFTOR
     Indication: CYSTIC FIBROSIS
     Dosage: 2 TABLETS (100MG ELEXACAFTOR/ 50MG TEZACAFTOR/ 75MG IVACAFTOR) AM, 1 TABLET (150MG IVACAFTOR) PM
     Route: 048
     Dates: start: 20191118

REACTIONS (6)
  - Acne [Recovering/Resolving]
  - Increased appetite [Not Recovered/Not Resolved]
  - Hunger [Not Recovered/Not Resolved]
  - Weight increased [Unknown]
  - Rash [Not Recovered/Not Resolved]
  - Diarrhoea [Unknown]

NARRATIVE: CASE EVENT DATE: 201911
